FAERS Safety Report 5135649-4 (Version None)
Quarter: 2006Q4

REPORT INFORMATION
  Report Type: 
  Country: None (occurrence: None)
  Receive Date: 20061020
  Receipt Date: 20061006
  Transmission Date: 20070319
  Serious: Yes (Death)
  Sender: FDA-Public Use
  Company Number: 23100330

PATIENT
  Age: 65 Year
  Sex: Male

DRUGS (3)
  1. ARGATROBAN [Suspect]
     Indication: CORONARY ANGIOPLASTY
     Dosage: 350 MCG/K ONCE IV
     Route: 042
  2. ARGATROBAN [Suspect]
     Indication: CORONARY ANGIOPLASTY
     Dosage: 40 MCG/KG/MIN CONT IV
     Route: 042
  3. ANGIOMAX [Suspect]

REACTIONS (2)
  - CARDIOPULMONARY BYPASS [None]
  - POST PROCEDURAL HAEMORRHAGE [None]
